FAERS Safety Report 11512480 (Version 2)
Quarter: 2015Q4

REPORT INFORMATION
  Report Type: Report from Study
  Country: AU (occurrence: AU)
  Receive Date: 20150916
  Receipt Date: 20151013
  Transmission Date: 20160304
  Serious: Yes (Other)
  Sender: FDA-Public Use
  Company Number: PHHY2015AU091516

PATIENT
  Age: 69 Year
  Sex: Female

DRUGS (1)
  1. SANDOSTATIN LAR DEPOT [Suspect]
     Active Substance: OCTREOTIDE ACETATE
     Indication: CARCINOID SYNDROME
     Dosage: 20 MG, UNK
     Route: 030

REACTIONS (4)
  - Rectal haemorrhage [Not Recovered/Not Resolved]
  - Dysphonia [Unknown]
  - Oropharyngeal pain [Unknown]
  - Rectal prolapse [Not Recovered/Not Resolved]

NARRATIVE: CASE EVENT DATE: 20150716
